FAERS Safety Report 19166105 (Version 3)
Quarter: 2022Q2

REPORT INFORMATION
  Report Type: Report from Study
  Country: US (occurrence: US)
  Receive Date: 20210422
  Receipt Date: 20220421
  Transmission Date: 20220720
  Serious: Yes (Hospitalization, Other)
  Sender: FDA-Public Use
  Company Number: US-ACTELION-A-NJ2016-140607

PATIENT
  Age: 55 Year
  Sex: Female
  Weight: 88.435 kg

DRUGS (7)
  1. OPSUMIT [Suspect]
     Active Substance: MACITENTAN
     Indication: Pulmonary hypertension
     Dosage: 10 MG, QD
     Route: 048
     Dates: start: 20150617
  2. OPSUMIT [Suspect]
     Active Substance: MACITENTAN
     Dosage: UNK
     Route: 048
  3. UPTRAVI [Suspect]
     Active Substance: SELEXIPAG
     Indication: Pulmonary hypertension
     Dosage: 1600 MCG, BID
     Route: 048
     Dates: start: 20160203
  4. UPTRAVI [Suspect]
     Active Substance: SELEXIPAG
     Dosage: 600 MCG, BID
     Route: 048
  5. UPTRAVI [Suspect]
     Active Substance: SELEXIPAG
     Route: 048
  6. REVATIO [Concomitant]
     Active Substance: SILDENAFIL CITRATE
  7. TADALAFIL [Concomitant]
     Active Substance: TADALAFIL

REACTIONS (20)
  - Liver transplant [Unknown]
  - Pulmonary arterial pressure increased [Unknown]
  - Contusion [Unknown]
  - Pulmonary oedema [Unknown]
  - Hepatic cirrhosis [Unknown]
  - Temporomandibular joint syndrome [Unknown]
  - Extra dose administered [Unknown]
  - Liver disorder [Unknown]
  - Pleural effusion [Unknown]
  - Pain in jaw [Unknown]
  - Fluid retention [Unknown]
  - Sinus disorder [Unknown]
  - Muscle strain [Unknown]
  - Headache [Unknown]
  - Weight increased [Unknown]
  - Hypertension [Unknown]
  - Cardiomegaly [Unknown]
  - Seasonal allergy [Unknown]
  - Urinary tract infection [Unknown]
  - Diarrhoea [Not Recovered/Not Resolved]

NARRATIVE: CASE EVENT DATE: 20180202
